FAERS Safety Report 16559708 (Version 1)
Quarter: 2019Q3

REPORT INFORMATION
  Report Type: Report from Study
  Country: JP (occurrence: JP)
  Receive Date: 20190711
  Receipt Date: 20190711
  Transmission Date: 20191004
  Serious: Yes (Other)
  Sender: FDA-Public Use
  Company Number: JP-SA-2019SA183532

PATIENT
  Age: 69 Year
  Sex: Male
  Weight: 58 kg

DRUGS (29)
  1. AFLIBERCEPT [Suspect]
     Active Substance: AFLIBERCEPT
     Dosage: 2 MG/KG (115MG), QOW
     Route: 041
     Dates: start: 20180928, end: 20181026
  2. AFLIBERCEPT [Suspect]
     Active Substance: AFLIBERCEPT
     Dosage: 2 MG/KG (115MG), QOW
     Route: 041
     Dates: start: 20190215, end: 20190301
  3. 5-FU [FLUOROURACIL] [Concomitant]
     Active Substance: FLUOROURACIL
     Indication: COLON CANCER
     Dosage: 200 MG/M2, QOW
     Route: 040
     Dates: start: 20180817, end: 20180831
  4. 5-FU [FLUOROURACIL] [Concomitant]
     Active Substance: FLUOROURACIL
     Dosage: 2340 MG/M2, QOW
     Route: 041
     Dates: start: 20180817, end: 20180831
  5. 5-FU [FLUOROURACIL] [Concomitant]
     Active Substance: FLUOROURACIL
     Dosage: 200 MG/M2, QOW
     Route: 040
     Dates: start: 20190118, end: 20190301
  6. LEUCOVORIN CA [Concomitant]
     Active Substance: LEUCOVORIN CALCIUM
     Indication: COLON CANCER
     Dosage: 400 MG/M2, QOW
     Route: 065
     Dates: start: 20180817, end: 20180831
  7. LEUCOVORIN CA [Concomitant]
     Active Substance: LEUCOVORIN CALCIUM
     Dosage: 400 MG/M2, 1X
     Route: 065
     Dates: start: 20181221, end: 20181221
  8. AFLIBERCEPT [Suspect]
     Active Substance: AFLIBERCEPT
     Dosage: 2 MG/KG (115MG), 1X
     Route: 041
     Dates: start: 20181122, end: 20181122
  9. 5-FU [FLUOROURACIL] [Concomitant]
     Active Substance: FLUOROURACIL
     Dosage: 200 MG/M2, 1X
     Route: 040
     Dates: start: 20181122, end: 20181122
  10. IRINOTECAN [Concomitant]
     Active Substance: IRINOTECAN
     Dosage: 200 MG/M2, QOW
     Route: 065
     Dates: start: 20180928, end: 20181109
  11. IRINOTECAN [Concomitant]
     Active Substance: IRINOTECAN
     Dosage: 200 MG/M2, 1X
     Route: 065
     Dates: start: 20181122, end: 20181122
  12. IRINOTECAN [Concomitant]
     Active Substance: IRINOTECAN
     Dosage: 200 MG/M2, 1X
     Route: 065
     Dates: start: 20181221, end: 20181221
  13. LEUCOVORIN CA [Concomitant]
     Active Substance: LEUCOVORIN CALCIUM
     Dosage: 200 MG/M2, QOW
     Route: 065
     Dates: start: 20180525, end: 20180803
  14. 5-FU [FLUOROURACIL] [Concomitant]
     Active Substance: FLUOROURACIL
     Dosage: 2340 MG/M2, QOW
     Route: 041
     Dates: start: 20180928, end: 20181109
  15. 5-FU [FLUOROURACIL] [Concomitant]
     Active Substance: FLUOROURACIL
     Dosage: 2340 MG/M2, QOW
     Route: 041
     Dates: start: 20190118, end: 20190301
  16. LEUCOVORIN CA [Concomitant]
     Active Substance: LEUCOVORIN CALCIUM
     Dosage: 400 MG/M2, 1X
     Route: 065
     Dates: start: 20181122, end: 20181122
  17. 5-FU [FLUOROURACIL] [Concomitant]
     Active Substance: FLUOROURACIL
     Dosage: 2340 MG/M2, 1X
     Route: 041
     Dates: start: 20181122, end: 20181122
  18. IRINOTECAN [Concomitant]
     Active Substance: IRINOTECAN
     Dosage: 200 MG/M2, QOW
     Route: 065
     Dates: start: 20190118, end: 20190301
  19. LEUCOVORIN CA [Concomitant]
     Active Substance: LEUCOVORIN CALCIUM
     Dosage: 400 MG/M2, QOW
     Route: 065
     Dates: start: 20180928, end: 20181109
  20. LEUCOVORIN CA [Concomitant]
     Active Substance: LEUCOVORIN CALCIUM
     Dosage: 400 MG/M2, QOW
     Route: 065
     Dates: start: 20190118, end: 20190301
  21. 5-FU [FLUOROURACIL] [Concomitant]
     Active Substance: FLUOROURACIL
     Dosage: 200 MG/M2, 1X
     Route: 040
     Dates: start: 20181221, end: 20181221
  22. AFLIBERCEPT [Suspect]
     Active Substance: AFLIBERCEPT
     Indication: COLON CANCER
     Dosage: 3.97 MG/KG (230MG), QOW
     Route: 041
     Dates: start: 20180525, end: 20180831
  23. AFLIBERCEPT [Suspect]
     Active Substance: AFLIBERCEPT
     Dosage: 2 MG/KG (115MG), 1X
     Route: 041
     Dates: start: 20181221, end: 20181221
  24. 5-FU [FLUOROURACIL] [Concomitant]
     Active Substance: FLUOROURACIL
     Dosage: 200 MG/M2, QOW
     Route: 040
     Dates: start: 20180928, end: 20181109
  25. 5-FU [FLUOROURACIL] [Concomitant]
     Active Substance: FLUOROURACIL
     Dosage: 2340 MG/M2, 1X
     Route: 041
     Dates: start: 20181221, end: 20181221
  26. 5-FU [FLUOROURACIL] [Concomitant]
     Active Substance: FLUOROURACIL
     Dosage: 400 MG/M2, QOW
     Route: 040
     Dates: start: 20180525, end: 20180803
  27. 5-FU [FLUOROURACIL] [Concomitant]
     Active Substance: FLUOROURACIL
     Dosage: 2340 MG/M2, QOW
     Route: 041
     Dates: start: 20180525, end: 20180803
  28. IRINOTECAN [Concomitant]
     Active Substance: IRINOTECAN
     Indication: COLON CANCER
     Dosage: 200 MG/M2, QOW
     Route: 065
     Dates: start: 20180817, end: 20180831
  29. IRINOTECAN [Concomitant]
     Active Substance: IRINOTECAN
     Dosage: 150 MG/M2, QOW
     Route: 065
     Dates: start: 20180525, end: 20180803

REACTIONS (1)
  - Hypertensive crisis [Unknown]

NARRATIVE: CASE EVENT DATE: 2018
